FAERS Safety Report 9838805 (Version 2)
Quarter: 2014Q3

REPORT INFORMATION
  Report Type: Spontaneous
  Country: US (occurrence: US)
  Receive Date: 20140123
  Receipt Date: 20140808
  Transmission Date: 20150326
  Serious: Yes (Hospitalization, Other)
  Sender: FDA-Public Use
  Company Number: US-009507513-1401USA010019

PATIENT
  Sex: Female

DRUGS (3)
  1. NUVARING [Suspect]
     Active Substance: ETHINYL ESTRADIOL\ETONOGESTREL
     Indication: UTERINE LEIOMYOMA
  2. PREVACID [Concomitant]
     Active Substance: LANSOPRAZOLE
     Indication: PRODUCT USED FOR UNKNOWN INDICATION
     Route: 048
  3. NUVARING [Suspect]
     Active Substance: ETHINYL ESTRADIOL\ETONOGESTREL
     Indication: CONTRACEPTION
     Dosage: UNK
     Route: 067

REACTIONS (10)
  - Hypertension [Unknown]
  - Left ventricular dysfunction [Unknown]
  - Anaemia [Unknown]
  - Vena cava filter insertion [Unknown]
  - Left ventricular hypertrophy [Unknown]
  - Pulmonary embolism [Unknown]
  - Deep vein thrombosis [Unknown]
  - Menorrhagia [Unknown]
  - Thrombophlebitis superficial [Unknown]
  - Off label use [Unknown]

NARRATIVE: CASE EVENT DATE: 200411
